FAERS Safety Report 4580587-9 (Version None)
Quarter: 2005Q1

REPORT INFORMATION
  Report Type: 
  Country: None (occurrence: None)
  Receive Date: 20050214
  Receipt Date: 20040419
  Transmission Date: 20050727
  Serious: No
  Sender: FDA-Public Use
  Company Number: US-GLAXOSMITHKLINE-A0507592A

PATIENT
  Age: 68 Year
  Sex: Female

DRUGS (7)
  1. LAMICTAL [Suspect]
     Indication: BIPOLAR DISORDER
     Dosage: 25MG ALTERNATE DAYS
     Route: 048
     Dates: start: 20040414
  2. ACCUPRIL [Concomitant]
  3. METOPROLOL [Concomitant]
  4. PREMARIN [Concomitant]
  5. LEVOXYL [Concomitant]
  6. NEURONTIN [Concomitant]
  7. DEPAKOTE [Concomitant]

REACTIONS (1)
  - BLOOD PRESSURE INCREASED [None]
